FAERS Safety Report 14876499 (Version 1)
Quarter: 2018Q2

REPORT INFORMATION
  Report Type: Spontaneous
  Country: ES (occurrence: ES)
  Receive Date: 20180510
  Receipt Date: 20180510
  Transmission Date: 20180711
  Serious: Yes (Hospitalization)
  Sender: FDA-Public Use
  Company Number: ES-SA-2018SA128822

PATIENT
  Age: 69 Year
  Sex: Male
  Weight: 64 kg

DRUGS (6)
  1. RIFATER [Suspect]
     Active Substance: ISONIAZID\PYRAZINAMIDE\RIFAMPIN
     Indication: TUBERCULOSIS
     Route: 048
     Dates: start: 20120504, end: 20120529
  2. ENALAPRIL [Concomitant]
     Active Substance: ENALAPRIL
     Route: 048
  3. OMEPRAZOLE. [Concomitant]
     Active Substance: OMEPRAZOLE
     Route: 048
  4. HYDROCHLOROTHIAZIDE. [Concomitant]
     Active Substance: HYDROCHLOROTHIAZIDE
     Route: 048
  5. AMLODIPINE [Concomitant]
     Active Substance: AMLODIPINE BESYLATE
     Route: 048
  6. ATORVASTATIN [Concomitant]
     Active Substance: ATORVASTATIN
     Route: 048
     Dates: end: 20120529

REACTIONS (6)
  - Acute kidney injury [Recovered/Resolved]
  - Stomatitis [Recovered/Resolved]
  - Coagulopathy [Recovered/Resolved]
  - Hepatitis [Recovered/Resolved]
  - Hypersensitivity [Recovered/Resolved]
  - Vasculitis [Recovered/Resolved]

NARRATIVE: CASE EVENT DATE: 20120529
